FAERS Safety Report 9443652 (Version 1)
Quarter: 2013Q3

REPORT INFORMATION
  Report Type: Spontaneous
  Country: FR (occurrence: FR)
  Receive Date: 20130806
  Receipt Date: 20130806
  Transmission Date: 20140515
  Serious: Yes (Hospitalization)
  Sender: FDA-Public Use
  Company Number: FR-PFIZER INC-2013227500

PATIENT
  Age: 46 Year
  Sex: Male

DRUGS (5)
  1. DALACINE [Suspect]
     Indication: TOXOPLASMOSIS
     Dosage: 1800 MG, 1X/DAY
     Route: 048
     Dates: start: 20130606, end: 20130615
  2. MALOCIDE [Suspect]
     Indication: TOXOPLASMOSIS
     Dosage: 75 MG, 1X/DAY
     Route: 048
     Dates: start: 20130606, end: 20130615
  3. DISULONE [Suspect]
     Indication: ANTIFUNGAL PROPHYLAXIS
     Dosage: 50 MG, 1X/DAY
     Route: 048
     Dates: start: 20130607, end: 20130615
  4. ATRIPLA [Concomitant]
     Dosage: UNK
  5. WELLVONE [Concomitant]
     Dosage: UNK

REACTIONS (2)
  - Drug reaction with eosinophilia and systemic symptoms [Recovered/Resolved with Sequelae]
  - Pruritus [Recovered/Resolved with Sequelae]
